FAERS Safety Report 5474887-8 (Version None)
Quarter: 2007Q3

REPORT INFORMATION
  Report Type: 
  Country: None (occurrence: None)
  Receive Date: 20070928
  Receipt Date: 20070913
  Transmission Date: 20080115
  Serious: Yes (Other)
  Sender: FDA-Public Use
  Company Number: 2007001697

PATIENT
  Sex: Male

DRUGS (7)
  1. TARCEVA [Suspect]
     Dosage: ORAL
     Route: 048
  2. DI ANTALVIC [Concomitant]
  3. LEVOTHYROXINE SODIUM [Concomitant]
  4. NEURONTIN [Concomitant]
  5. AMARYL [Concomitant]
  6. IRBESARTAN [Concomitant]
  7. PREVISCAN (FLUINDIONE) [Concomitant]

REACTIONS (1)
  - EPILEPSY [None]
